FAERS Safety Report 7681396-4 (Version None)
Quarter: 2011Q3

REPORT INFORMATION
  Report Type: 
  Country: None (occurrence: None)
  Receive Date: 20110809
  Receipt Date: 20110728
  Transmission Date: 20111222
  Serious: Yes (Death, Other)
  Sender: FDA-Public Use
  Company Number: DSA_47291_2011

PATIENT
  Age: 30 Year
  Sex: Female

DRUGS (3)
  1. FOSCARNET [Concomitant]
  2. VALACICLOVIR [Concomitant]
  3. ACYCLOVIR [Suspect]
     Indication: HERPES ZOSTER
     Dosage: (5MG/KG  THREE TIMES A DAY INTRAVENOUS (NOT OTHERWISE SPECIFIED)), (10MG/KG THREE TIMES A DAY INTRAV

REACTIONS (6)
  - DRUG INEFFECTIVE [None]
  - GRAFT VERSUS HOST DISEASE [None]
  - RESPIRATORY FAILURE [None]
  - OPTIC NEURITIS [None]
  - ENCEPHALITIS [None]
  - EPILEPSY [None]
